FAERS Safety Report 4556145-9 (Version None)
Quarter: 2005Q1

REPORT INFORMATION
  Report Type: 
  Country: None (occurrence: None)
  Receive Date: 20050114
  Receipt Date: 20050105
  Transmission Date: 20050727
  Serious: Yes (Hospitalization)
  Sender: FDA-Public Use
  Company Number: 2005007126

PATIENT
  Age: 62 Year
  Sex: Female

DRUGS (2)
  1. CELEBRA (CELECOXIB) [Suspect]
     Indication: PAIN
     Dosage: ORAL
     Route: 048
     Dates: start: 20050104, end: 20050104
  2. TRAMADOL HCL [Suspect]
     Indication: PAIN
     Dates: start: 20050104, end: 20050104

REACTIONS (4)
  - BLOOD PRESSURE SYSTOLIC INCREASED [None]
  - DRUG INEFFECTIVE [None]
  - HOT FLUSH [None]
  - INTERVERTEBRAL DISC PROTRUSION [None]
